FAERS Safety Report 13692146 (Version 1)
Quarter: 2017Q2

REPORT INFORMATION
  Report Type: Spontaneous
  Country: FR (occurrence: FR)
  Receive Date: 20170627
  Receipt Date: 20170627
  Transmission Date: 20170830
  Serious: Yes (Hospitalization)
  Sender: FDA-Public Use
  Company Number: FR-ROCHE-1955213

PATIENT
  Age: 75 Year
  Sex: Female

DRUGS (6)
  1. MABTHERA [Suspect]
     Active Substance: RITUXIMAB
     Dosage: :3 CYCLES OUT OF 8 CYCLES
     Route: 041
     Dates: start: 20170426
  2. MABTHERA [Suspect]
     Active Substance: RITUXIMAB
     Indication: NON-HODGKIN^S LYMPHOMA
     Dosage: FROM JANUARY TO MARCH 2017:3 CYCLES OUT OF 8 CYCLES INITIALLY PLANNED
     Route: 041
     Dates: start: 201701
  3. ALFUZOSINE [Concomitant]
     Active Substance: ALFUZOSIN HYDROCHLORIDE
  4. BENDAMUSTINE [Concomitant]
     Active Substance: BENDAMUSTINE
     Dosage: FROM JANUARY TO MARCH 2017:3 CYCLES OUT OF 8 CYCLES INITIALLY PLANNED
     Route: 065
  5. TAZOCILLINE [Concomitant]
     Active Substance: PIPERACILLIN SODIUM\TAZOBACTAM SODIUM
  6. CIPROFLOXACINE [Concomitant]
     Active Substance: CIPROFLOXACIN

REACTIONS (1)
  - Kaposi^s sarcoma classical type [Not Recovered/Not Resolved]

NARRATIVE: CASE EVENT DATE: 20170501
